FAERS Safety Report 19996139 (Version 1)
Quarter: 2021Q4

REPORT INFORMATION
  Report Type: Spontaneous
  Country: US (occurrence: US)
  Receive Date: 20211026
  Receipt Date: 20211026
  Transmission Date: 20220303
  Serious: No
  Sender: FDA-Public Use
  Company Number: US-ENDO PHARMACEUTICALS INC-2021-011043

PATIENT

DRUGS (4)
  1. QWO [Suspect]
     Active Substance: COLLAGENASE CLOSTRIDIUM HISTOLYTICUM-AAES
     Indication: Product used for unknown indication
     Dosage: 0.92 MG, UNKNOWN; FIRST TREATMENT
     Route: 065
     Dates: start: 20210414
  2. QWO [Suspect]
     Active Substance: COLLAGENASE CLOSTRIDIUM HISTOLYTICUM-AAES
     Dosage: 0.92 MG, UNKNOWN; SECOND TREATMENT
     Route: 065
     Dates: start: 20210430
  3. QWO [Suspect]
     Active Substance: COLLAGENASE CLOSTRIDIUM HISTOLYTICUM-AAES
     Dosage: 0.92 MG, UNKNOWN; THIRD TREATMENT
     Route: 065
     Dates: start: 20210521
  4. QWO [Suspect]
     Active Substance: COLLAGENASE CLOSTRIDIUM HISTOLYTICUM-AAES
     Dosage: 0.92 MG, UNKNOWN; THIRD TREATMENT
     Route: 065
     Dates: start: 20210611

REACTIONS (2)
  - Drug ineffective [Unknown]
  - Skin hyperpigmentation [Unknown]

NARRATIVE: CASE EVENT DATE: 20210101
